FAERS Safety Report 18450344 (Version 3)
Quarter: 2021Q4

REPORT INFORMATION
  Report Type: Spontaneous
  Country: US (occurrence: US)
  Receive Date: 20201031
  Receipt Date: 20211110
  Transmission Date: 20220304
  Serious: Yes (Other)
  Sender: FDA-Public Use
  Company Number: US-PURDUE-USA-2020-0153259

PATIENT
  Sex: Male

DRUGS (1)
  1. OXYCONTIN [Suspect]
     Active Substance: OXYCODONE HYDROCHLORIDE
     Indication: Product used for unknown indication
     Dosage: UNKNOWN
     Route: 048
     Dates: end: 2013

REACTIONS (6)
  - Suicidal ideation [Unknown]
  - Chronic obstructive pulmonary disease [Unknown]
  - Liver injury [Unknown]
  - Drug dependence [Unknown]
  - Weight decreased [Unknown]
  - Depression [Unknown]
